FAERS Safety Report 16370742 (Version 2)
Quarter: 2019Q2

REPORT INFORMATION
  Report Type: Spontaneous
  Country: SK (occurrence: SK)
  Receive Date: 20190530
  Receipt Date: 20190615
  Transmission Date: 20190711
  Serious: Yes (Death, Other)
  Sender: FDA-Public Use
  Company Number: SK-ACCORD-130070

PATIENT
  Age: 53 Year
  Sex: Female

DRUGS (2)
  1. CISPLATIN. [Suspect]
     Active Substance: CISPLATIN
     Indication: PANCREATIC CARCINOMA
     Dosage: DAYS 1 AND 15, ADMINISTERED IN 28-DAY SCHEDULES, RELATIVE DOSE INTENSITY WAS 71.4%
     Route: 042
     Dates: start: 201703, end: 201706
  2. GEMCITABINE/GEMCITABINE HYDROCHLORIDE [Suspect]
     Active Substance: GEMCITABINE\GEMCITABINE HYDROCHLORIDE
     Indication: PANCREATIC CARCINOMA
     Dosage: (DAYS 1, 8 AND 15 ADMINISTERED IN 28-DAY SCHEDULES, RELATIVE DOSE INTENSITY WAS 52.4%)
     Dates: start: 201706, end: 201706

REACTIONS (11)
  - Nausea [Recovering/Resolving]
  - Thrombocytopenia [Recovering/Resolving]
  - Haematotoxicity [Recovering/Resolving]
  - Abdominal pain [Unknown]
  - Cholestasis [Unknown]
  - Nutritional condition abnormal [Unknown]
  - Gastrointestinal toxicity [Recovering/Resolving]
  - Decreased appetite [Recovering/Resolving]
  - Anaemia [Recovering/Resolving]
  - Performance status decreased [Unknown]
  - Pancreatic carcinoma metastatic [Unknown]

NARRATIVE: CASE EVENT DATE: 2017
